FAERS Safety Report 17499621 (Version 1)
Quarter: 2020Q1

REPORT INFORMATION
  Report Type: Spontaneous
  Country: US (occurrence: US)
  Receive Date: 20200304
  Receipt Date: 20200304
  Transmission Date: 20200409
  Serious: No
  Sender: FDA-Public Use
  Company Number: US-PTC THERAPEUTICS, INC.-US-2020PTC000089

PATIENT
  Age: 18 Year
  Sex: Male
  Weight: 81.59 kg

DRUGS (1)
  1. EMFLAZA [Suspect]
     Active Substance: DEFLAZACORT
     Indication: PRODUCT USED FOR UNKNOWN INDICATION
     Dosage: 30 MG, QD
     Route: 048

REACTIONS (3)
  - Product dose omission [Unknown]
  - Gastroenteritis viral [Unknown]
  - Food intolerance [Unknown]

NARRATIVE: CASE EVENT DATE: 202001
